FAERS Safety Report 4426930-2 (Version None)
Quarter: 2004Q3

REPORT INFORMATION
  Report Type: 
  Country: None (occurrence: None)
  Receive Date: 20040811
  Receipt Date: 20040730
  Transmission Date: 20050211
  Serious: Yes (Other)
  Sender: FDA-Public Use
  Company Number: 2004052042

PATIENT
  Sex: Male

DRUGS (2)
  1. NORVASC [Suspect]
     Indication: ILL-DEFINED DISORDER
     Dosage: 20 MG (1 IN 1 D)
  2. METOPROLOL TARTRATE [Suspect]
     Indication: ILL-DEFINED DISORDER

REACTIONS (8)
  - BENIGN PROSTATIC HYPERPLASIA [None]
  - BRADYPHRENIA [None]
  - DEPRESSION [None]
  - DRUG INTERACTION [None]
  - FATIGUE [None]
  - HALLUCINATION [None]
  - PAIN [None]
  - RENAL DISORDER [None]
